FAERS Safety Report 8149116-7 (Version None)
Quarter: 2012Q1

REPORT INFORMATION
  Report Type: 
  Country: None (occurrence: None)
  Receive Date: 20120218
  Receipt Date: 20110803
  Transmission Date: 20120608
  Serious: No
  Sender: FDA-Public Use
  Company Number: US-ALLERGAN-200407368

PATIENT
  Sex: Female

DRUGS (5)
  1. CLONOPIN [Concomitant]
     Indication: PRODUCT USED FOR UNKNOWN INDICATION
  2. LIDOCAINE [Concomitant]
     Indication: PRODUCT USED FOR UNKNOWN INDICATION
  3. VICODIN [Concomitant]
     Indication: PRODUCT USED FOR UNKNOWN INDICATION
  4. VASOTEC [Concomitant]
     Indication: PRODUCT USED FOR UNKNOWN INDICATION
  5. BOTULINUM TOXIN TYPE A [Suspect]
     Indication: TORTICOLLIS
     Route: 030
     Dates: start: 19960101, end: 20040528

REACTIONS (3)
  - FEELING HOT [None]
  - ERYTHEMA [None]
  - SWELLING FACE [None]
